FAERS Safety Report 22864642 (Version 14)
Quarter: 2025Q3

REPORT INFORMATION
  Report Type: Spontaneous
  Country: CA (occurrence: CA)
  Receive Date: 20230825
  Receipt Date: 20250911
  Transmission Date: 20251021
  Serious: Yes (Death, Life-Threatening, Hospitalization, Disabling, Congenital Anomaly, Other)
  Sender: GLAXOSMITHKLINE
  Company Number: CA-GLAXOSMITHKLINE-CA2023AMR112545

PATIENT
  Age: 44 Year
  Sex: Female
  Weight: 97 kg

DRUGS (31)
  1. ALBUTEROL [Suspect]
     Active Substance: ALBUTEROL
     Indication: Product used for unknown indication
     Route: 065
  2. ACTEMRA [Suspect]
     Active Substance: TOCILIZUMAB
     Indication: Rheumatoid arthritis
     Dosage: 728 MG, QD
  3. ACTEMRA [Suspect]
     Active Substance: TOCILIZUMAB
     Indication: Product used for unknown indication
     Dosage: 2912 MG, QD
  4. ACTEMRA [Suspect]
     Active Substance: TOCILIZUMAB
  5. ACTEMRA [Suspect]
     Active Substance: TOCILIZUMAB
     Dosage: 3011.2 MG, QD
  6. ACTEMRA [Suspect]
     Active Substance: TOCILIZUMAB
     Dosage: 712 MG, QD
  7. ACTEMRA [Suspect]
     Active Substance: TOCILIZUMAB
     Dosage: 752 MG, QD
  8. ACTEMRA [Suspect]
     Active Substance: TOCILIZUMAB
     Dosage: 2912 MG, QD
     Route: 065
  9. ACTEMRA [Suspect]
     Active Substance: TOCILIZUMAB
     Dosage: 752.8 MG, QD
  10. CALCIUM [Suspect]
     Active Substance: CALCIUM
     Indication: Product used for unknown indication
     Route: 065
  11. CALCIUM\CHOLECALCIFEROL [Suspect]
     Active Substance: CALCIUM\CHOLECALCIFEROL
     Indication: Product used for unknown indication
     Route: 065
  12. CALCIUM\CHOLECALCIFEROL [Suspect]
     Active Substance: CALCIUM\CHOLECALCIFEROL
     Route: 065
  13. CALCIUM CARBONATE [Suspect]
     Active Substance: CALCIUM CARBONATE
     Indication: Product used for unknown indication
     Route: 065
  14. CALCIUM GLUBIONATE [Suspect]
     Active Substance: CALCIUM GLUBIONATE
     Indication: Product used for unknown indication
     Route: 065
  15. CALCIUM GLUBIONATE [Suspect]
     Active Substance: CALCIUM GLUBIONATE
     Route: 065
  16. CALCIUM GLUBIONATE [Suspect]
     Active Substance: CALCIUM GLUBIONATE
  17. CALCIUM GLUCONATE [Suspect]
     Active Substance: CALCIUM GLUCONATE
     Indication: Product used for unknown indication
     Route: 065
  18. CALCIUM LACTATE [Suspect]
     Active Substance: CALCIUM LACTATE
     Indication: Product used for unknown indication
     Route: 065
  19. CELEBREX [Suspect]
     Active Substance: CELECOXIB
     Indication: Rheumatoid arthritis
     Dosage: 7.5 MG, QD
  20. CELEBREX [Suspect]
     Active Substance: CELECOXIB
     Indication: Off label use
     Dosage: 2 DF, QD
  21. CELEBREX [Suspect]
     Active Substance: CELECOXIB
     Dosage: 10 MG, QD
  22. CELEBREX [Suspect]
     Active Substance: CELECOXIB
     Dosage: 10 MG, QD
     Route: 065
  23. CELECOXIB [Suspect]
     Active Substance: CELECOXIB
     Indication: Rheumatoid arthritis
     Dosage: 10 MG, QD
     Route: 065
  24. CELECOXIB [Suspect]
     Active Substance: CELECOXIB
     Indication: Off label use
     Route: 065
  25. CELECOXIB [Suspect]
     Active Substance: CELECOXIB
     Dosage: 2 DF, QD
  26. CELECOXIB [Suspect]
     Active Substance: CELECOXIB
  27. CETIRIZINE HYDROCHLORIDE [Suspect]
     Active Substance: CETIRIZINE HYDROCHLORIDE
     Indication: Rheumatoid arthritis
     Dosage: 10 MG, QD
  28. CETIRIZINE HYDROCHLORIDE [Suspect]
     Active Substance: CETIRIZINE HYDROCHLORIDE
     Indication: Off label use
  29. CETIRIZINE HYDROCHLORIDE [Suspect]
     Active Substance: CETIRIZINE HYDROCHLORIDE
  30. CHLORAPREP [Suspect]
     Active Substance: CHLORHEXIDINE GLUCONATE\ISOPROPYL ALCOHOL
     Indication: Rheumatoid arthritis
     Dosage: 120 MG, QD
  31. CHLORAPREP [Suspect]
     Active Substance: CHLORHEXIDINE GLUCONATE\ISOPROPYL ALCOHOL
     Route: 065

REACTIONS (74)
  - Abdominal discomfort [Fatal]
  - Abdominal pain upper [Fatal]
  - Abdominal pain [Fatal]
  - Adjustment disorder with depressed mood [Fatal]
  - Alopecia [Fatal]
  - Amnesia [Fatal]
  - Anti-cyclic citrullinated peptide antibody positive [Fatal]
  - Anxiety [Fatal]
  - Arthralgia [Fatal]
  - Arthropathy [Fatal]
  - Arthritis [Fatal]
  - Asthenia [Fatal]
  - Asthma [Fatal]
  - Autoimmune disorder [Fatal]
  - Blister [Fatal]
  - Blood cholesterol increased [Fatal]
  - Bone erosion [Fatal]
  - Breast cancer stage III [Fatal]
  - Bursitis [Fatal]
  - C-reactive protein abnormal [Fatal]
  - C-reactive protein increased [Fatal]
  - Chest pain [Fatal]
  - Colitis ulcerative [Fatal]
  - Condition aggravated [Fatal]
  - Confusional state [Fatal]
  - Contusion [Fatal]
  - Crohn^s disease [Fatal]
  - Decreased appetite [Fatal]
  - Deep vein thrombosis postoperative [Fatal]
  - Delirium [Fatal]
  - Depression [Fatal]
  - Diarrhoea [Fatal]
  - Discomfort [Fatal]
  - Dislocation of vertebra [Fatal]
  - Dizziness [Fatal]
  - Drug hypersensitivity [Fatal]
  - Maternal exposure timing unspecified [Fatal]
  - Maternal exposure during pregnancy [Fatal]
  - Rectal haemorrhage [Fatal]
  - Visual impairment [Fatal]
  - Wound infection [Fatal]
  - Exposure during pregnancy [Fatal]
  - Weight increased [Fatal]
  - White blood cell count increased [Fatal]
  - Weight fluctuation [Fatal]
  - Wheezing [Fatal]
  - Weight decreased [Fatal]
  - X-ray abnormal [Fatal]
  - Joint swelling [Fatal]
  - Dry mouth [Fatal]
  - Loss of personal independence in daily activities [Fatal]
  - Walking aid user [Fatal]
  - Contraception [Fatal]
  - Laboratory test abnormal [Fatal]
  - Vomiting [Fatal]
  - Stomatitis [Fatal]
  - Swelling [Fatal]
  - Urticaria [Fatal]
  - Synovitis [Fatal]
  - Swollen joint count [Fatal]
  - Swollen joint count increased [Fatal]
  - Type 2 diabetes mellitus [Fatal]
  - Systemic lupus erythematosus [Fatal]
  - Rheumatoid factor positive [Fatal]
  - Sleep disorder due to general medical condition, insomnia type [Fatal]
  - Pruritus [Fatal]
  - Sinusitis [Fatal]
  - Road traffic accident [Fatal]
  - Rash [Fatal]
  - Sciatica [Fatal]
  - Rheumatic fever [Fatal]
  - Peripheral venous disease [Fatal]
  - Peripheral swelling [Fatal]
  - Pyrexia [Fatal]
